FAERS Safety Report 9732449 (Version 1)
Quarter: 2013Q4

REPORT INFORMATION
  Report Type: Spontaneous
  Country: US (occurrence: None)
  Receive Date: 20131204
  Receipt Date: 20131204
  Transmission Date: 20140711
  Serious: Yes (Other)
  Sender: FDA-Public Use
  Company Number: None

PATIENT
  Age: 50 Year
  Sex: Male
  Weight: 106.6 kg

DRUGS (1)
  1. STELERA [Suspect]
     Indication: PSORIASIS
     Route: 058
     Dates: start: 20121010, end: 20130507

REACTIONS (1)
  - Nervous system disorder [None]
